FAERS Safety Report 12413068 (Version 3)
Quarter: 2016Q2

REPORT INFORMATION
  Report Type: Report from Study
  Country: US (occurrence: US)
  Receive Date: 20160527
  Receipt Date: 20160627
  Transmission Date: 20160815
  Serious: Yes (Death, Hospitalization, Other)
  Sender: FDA-Public Use
  Company Number: US-AMGEN-USASL2016066214

PATIENT
  Age: 35 Year
  Sex: Female

DRUGS (1)
  1. BLINCYTO [Suspect]
     Active Substance: BLINATUMOMAB
     Indication: PRODUCT USED FOR UNKNOWN INDICATION
     Dosage: UNK
     Route: 065

REACTIONS (7)
  - Malaise [Unknown]
  - Death [Fatal]
  - Neuropathy peripheral [Unknown]
  - Pyrexia [Unknown]
  - Hypoaesthesia oral [Unknown]
  - Pain in extremity [Unknown]
  - Febrile neutropenia [Unknown]
